FAERS Safety Report 13238067 (Version 1)
Quarter: 2017Q1

REPORT INFORMATION
  Report Type: Spontaneous
  Country: US (occurrence: US)
  Receive Date: 20170215
  Receipt Date: 20170215
  Transmission Date: 20170428
  Serious: Yes (Other)
  Sender: FDA-Public Use
  Company Number: None

PATIENT
  Age: 11 Year
  Sex: Male
  Weight: 69.9 kg

DRUGS (1)
  1. LAMOTRIGINE SUSPENSION 1MG/ML [Suspect]
     Active Substance: LAMOTRIGINE
     Dosage: 6 ML Q AM 6.3 ML Q PM ORALLY
     Route: 048
     Dates: start: 2012, end: 2015

REACTIONS (2)
  - Dermatitis allergic [None]
  - Product substitution issue [None]

NARRATIVE: CASE EVENT DATE: 20150724
